FAERS Safety Report 8069240-7 (Version None)
Quarter: 2012Q1

REPORT INFORMATION
  Report Type: 
  Country: None (occurrence: None)
  Receive Date: 20120125
  Receipt Date: 20120119
  Transmission Date: 20120608
  Serious: Yes (Other)
  Sender: FDA-Public Use
  Company Number: US-JNJFOC-20120108810

PATIENT
  Sex: Female
  Weight: 71.67 kg

DRUGS (7)
  1. OXYCODONE HCL [Concomitant]
     Indication: PAIN
     Route: 048
     Dates: start: 20070101
  2. CELEBREX [Concomitant]
     Indication: PAIN
     Route: 048
     Dates: start: 20070101
  3. PRISTIQ [Concomitant]
     Indication: PAIN
     Route: 048
     Dates: start: 20070101
  4. DURAGESIC-100 [Suspect]
     Indication: PAIN MANAGEMENT
     Dosage: 25UG/HR + 12UG/HR
     Route: 062
     Dates: start: 20100101
  5. LYRICA [Concomitant]
     Indication: FIBROMYALGIA
     Route: 048
     Dates: start: 20070101
  6. SOMA [Concomitant]
     Indication: PAIN
     Route: 048
     Dates: start: 20070101
  7. ATIVAN [Concomitant]
     Indication: PAIN
     Route: 048
     Dates: start: 20070101

REACTIONS (8)
  - TREMOR [None]
  - MALAISE [None]
  - BURSITIS [None]
  - WITHDRAWAL SYNDROME [None]
  - PRODUCT QUALITY ISSUE [None]
  - VISION BLURRED [None]
  - INAPPROPRIATE SCHEDULE OF DRUG ADMINISTRATION [None]
  - AMNESIA [None]
